FAERS Safety Report 5481602-0 (Version None)
Quarter: 2007Q4

REPORT INFORMATION
  Report Type: 
  Country: None (occurrence: None)
  Receive Date: 20071010
  Receipt Date: 20070928
  Transmission Date: 20080405
  Serious: Yes (Other)
  Sender: FDA-Public Use
  Company Number: US-KINGPHARMUSA00001-K200701256

PATIENT

DRUGS (10)
  1. ALTACE [Suspect]
     Indication: HYPERTENSION
     Dosage: 10 MG, QD
     Route: 048
     Dates: start: 20070411, end: 20070707
  2. ADCAL-D3 [Concomitant]
  3. ASPIRIN [Concomitant]
     Indication: ANTICOAGULANT THERAPY
     Dosage: 75 MG, QD
  4. ATENOLOL [Concomitant]
     Indication: ANGINA PECTORIS
     Dosage: 25 MG, QD
  5. ATENOLOL [Concomitant]
     Indication: HYPERTENSION
  6. GLYCERYL TRINITRATE [Concomitant]
     Dosage: UNK, PRN
     Route: 060
  7. PREDNISOLONE [Concomitant]
  8. RABEPRAZOLE SODIUM [Concomitant]
     Dosage: 10 MG, QD
  9. SIMVASTATIN [Concomitant]
     Indication: HYPERCHOLESTEROLAEMIA
     Dosage: 40 MG, QD
  10. STRONTIUM RANELATE [Concomitant]
     Dosage: 2 G, QD

REACTIONS (3)
  - DYSPHAGIA [None]
  - OROPHARYNGEAL SWELLING [None]
  - RHINITIS [None]
